FAERS Safety Report 8060349-0 (Version None)
Quarter: 2012Q1

REPORT INFORMATION
  Report Type: 
  Country: None (occurrence: None)
  Receive Date: 20120120
  Receipt Date: 20111207
  Transmission Date: 20120608
  Serious: No
  Sender: FDA-Public Use
  Company Number: US-NOVEN-11US003753

PATIENT
  Sex: Male

DRUGS (2)
  1. FENTANYL [Suspect]
     Indication: PAIN IN EXTREMITY
     Dosage: 25 UG, UNK
     Dates: start: 20111101
  2. FENTANYL [Suspect]
     Indication: BACK PAIN
     Dosage: 50 UG/HR X 72 HOURS
     Route: 062
     Dates: start: 20111201

REACTIONS (2)
  - PRURITUS [None]
  - URTICARIA [None]
